FAERS Safety Report 5581453-2 (Version None)
Quarter: 2008Q1

REPORT INFORMATION
  Report Type: 
  Country: None (occurrence: None)
  Receive Date: 20080104
  Receipt Date: 20071228
  Transmission Date: 20080703
  Serious: Yes (Hospitalization)
  Sender: FDA-Public Use
  Company Number: DE-WYE-G00826607

PATIENT
  Sex: Male
  Weight: 85 kg

DRUGS (4)
  1. TREVILOR RETARD [Suspect]
     Dosage: TWO CAPSULES (OVERDOSE AMOUNT 300MG)
     Route: 048
     Dates: start: 20071227, end: 20071227
  2. DOXEPIN HCL [Suspect]
     Dosage: 4 TABLETS (OVERDOSE AMOUNT 200MG)
     Route: 048
     Dates: start: 20071227, end: 20071227
  3. ALCOHOL [Suspect]
     Dosage: UNKNOWN AMOUNT
     Route: 048
     Dates: start: 20071227, end: 20071227
  4. DISTRANEURINE [Suspect]
     Dosage: UNKNOWN AMOUNT
     Route: 048
     Dates: start: 20071227, end: 20071227

REACTIONS (2)
  - DYSARTHRIA [None]
  - INTENTIONAL OVERDOSE [None]
